FAERS Safety Report 4299489-0 (Version None)
Quarter: 2004Q1

REPORT INFORMATION
  Report Type: 
  Country: None (occurrence: None)
  Receive Date: 20040219
  Receipt Date: 20040216
  Transmission Date: 20041129
  Serious: Yes (Hospitalization)
  Sender: FDA-Public Use
  Company Number: FR-GLAXOSMITHKLINE-B0323539A

PATIENT
  Age: 96 Year
  Sex: Female

DRUGS (2)
  1. CLAMOXYL [Suspect]
     Indication: LUNG DISORDER
     Route: 065
     Dates: start: 20040120, end: 20040120
  2. GLIBENESE [Concomitant]
     Indication: DIABETES MELLITUS NON-INSULIN-DEPENDENT
     Route: 048

REACTIONS (4)
  - ERYTHEMA [None]
  - GENERALISED ERYTHEMA [None]
  - PRURITUS [None]
  - PRURITUS GENERALISED [None]
